FAERS Safety Report 5684644-5 (Version None)
Quarter: 2008Q1

REPORT INFORMATION
  Report Type: 
  Country: None (occurrence: None)
  Receive Date: 20080328
  Receipt Date: 20070426
  Transmission Date: 20080703
  Serious: No
  Sender: FDA-Public Use
  Company Number: US-BRISTOL-MYERS SQUIBB COMPANY-13761408

PATIENT
  Age: 46 Year
  Sex: Male
  Weight: 59 kg

DRUGS (7)
  1. ERBITUX [Suspect]
     Indication: TONGUE NEOPLASM MALIGNANT STAGE UNSPECIFIED
     Dates: start: 20070101
  2. ERBITUX [Suspect]
     Indication: METASTASIS
     Dates: start: 20070101
  3. SALAGEN [Concomitant]
  4. ATIVAN [Concomitant]
  5. WELLBUTRIN [Concomitant]
  6. GUAIFENESIN [Concomitant]
  7. BENADRYL [Concomitant]

REACTIONS (3)
  - CONTUSION [None]
  - DERMATITIS ACNEIFORM [None]
  - DRUG EFFECT DECREASED [None]
